FAERS Safety Report 8774405 (Version 1)
Quarter: 2012Q4

REPORT INFORMATION
  Report Type: 
  Country: US (occurrence: US)
  Receive Date: 20120907
  Receipt Date: 20120907
  Transmission Date: 20130627
  Serious: No
  Sender: FDA-Public Use
  Company Number: US-009507513-1209USA001986

PATIENT

DRUGS (3)
  1. SAPHRIS [Suspect]
     Indication: SCHIZOPHRENIA
     Dosage: 5 mg, at bedtime
     Route: 060
     Dates: start: 2011
  2. PROZAC [Concomitant]
  3. TRILEPTAL [Concomitant]

REACTIONS (1)
  - Dry mouth [Not Recovered/Not Resolved]
